FAERS Safety Report 7002134-4 (Version None)
Quarter: 2010Q3

REPORT INFORMATION
  Report Type: 
  Country: None (occurrence: None)
  Receive Date: 20100920
  Receipt Date: 20100713
  Transmission Date: 20110219
  Serious: Yes (Hospitalization)
  Sender: FDA-Public Use
  Company Number: US-ASTRAZENECA-2010SE33277

PATIENT
  Age: 17204 Day
  Sex: Female
  Weight: 111.1 kg

DRUGS (5)
  1. SEROQUEL [Suspect]
     Dosage: 200MG TO 400MG
     Route: 048
     Dates: start: 20070602
  2. LEXAPRO [Concomitant]
     Dates: start: 20070602
  3. TRAZODONE HCL [Concomitant]
     Dates: start: 20070602
  4. LISINOPRIL [Concomitant]
     Dates: start: 20070702
  5. LIPITOR [Concomitant]
     Dates: start: 20070702

REACTIONS (5)
  - DIABETIC KETOACIDOSIS [None]
  - DYSLIPIDAEMIA [None]
  - OBESITY [None]
  - SCHIZOAFFECTIVE DISORDER [None]
  - TYPE 2 DIABETES MELLITUS [None]
